FAERS Safety Report 18398871 (Version 1)
Quarter: 2020Q4

REPORT INFORMATION
  Report Type: Spontaneous
  Country: US (occurrence: US)
  Receive Date: 20201019
  Receipt Date: 20201019
  Transmission Date: 20210114
  Serious: Yes (Hospitalization)
  Sender: FDA-Public Use
  Company Number: None

PATIENT
  Age: 75 Year
  Sex: Male
  Weight: 58.06 kg

DRUGS (1)
  1. ENFORTUMAB VEDOTIN-EJFV (ENFORTUMAB VEDOTIN-EJFV 20MG/VIAL INJ) [Suspect]
     Active Substance: ENFORTUMAB VEDOTIN-EJFV
     Indication: TRANSITIONAL CELL CARCINOMA
     Route: 042
     Dates: start: 20200306, end: 20200618

REACTIONS (5)
  - Amylase increased [None]
  - Liver function test increased [None]
  - Lipase increased [None]
  - Disease progression [None]
  - Hydronephrosis [None]

NARRATIVE: CASE EVENT DATE: 20200701
